FAERS Safety Report 9103283 (Version 4)
Quarter: 2014Q3

REPORT INFORMATION
  Report Type: Spontaneous
  Country: US (occurrence: US)
  Receive Date: 20130219
  Receipt Date: 20140709
  Transmission Date: 20150326
  Serious: Yes (Hospitalization, Other)
  Sender: FDA-Public Use
  Company Number: US-009507513-1302USA006747

PATIENT
  Sex: Female
  Weight: 58.96 kg

DRUGS (2)
  1. NUVARING [Suspect]
     Active Substance: ETHINYL ESTRADIOL\ETONOGESTREL
     Indication: MENSTRUATION IRREGULAR
  2. NUVARING [Suspect]
     Active Substance: ETHINYL ESTRADIOL\ETONOGESTREL
     Indication: CONTRACEPTION
     Dosage: UNK
     Route: 067
     Dates: start: 200910, end: 20100110

REACTIONS (29)
  - Headache [Unknown]
  - Atrial septal defect repair [Unknown]
  - Abortion spontaneous [Unknown]
  - Suicidal ideation [Unknown]
  - Skin hypopigmentation [Unknown]
  - Subacute endocarditis [Unknown]
  - Tachycardia [Recovered/Resolved]
  - Fall [Unknown]
  - Menstrual disorder [Unknown]
  - Suicidal ideation [Unknown]
  - Anxiety [Unknown]
  - Head injury [Unknown]
  - Off label use [Unknown]
  - Maternal exposure before pregnancy [Unknown]
  - Tinea infection [Not Recovered/Not Resolved]
  - Adjustment disorder with mixed anxiety and depressed mood [Unknown]
  - Psychotic disorder [Unknown]
  - Depression [Not Recovered/Not Resolved]
  - Paranoia [Unknown]
  - Knee operation [Unknown]
  - Sexually transmitted disease [Unknown]
  - Coagulopathy [Unknown]
  - Cerebrovascular accident [Recovering/Resolving]
  - Road traffic accident [Unknown]
  - Cervix carcinoma [Unknown]
  - Chlamydial cervicitis [Recovered/Resolved]
  - Headache [Unknown]
  - Constipation [Unknown]
  - Hunger [Unknown]

NARRATIVE: CASE EVENT DATE: 2010
